FAERS Safety Report 10489519 (Version 1)
Quarter: 2014Q4

REPORT INFORMATION
  Report Type: Spontaneous
  Country: AU (occurrence: AU)
  Receive Date: 20141002
  Receipt Date: 20141002
  Transmission Date: 20150528
  Serious: Yes (Other)
  Sender: FDA-Public Use
  Company Number: AU-AMGEN-AUSSP2014074173

PATIENT
  Age: 78 Year
  Sex: Female
  Weight: 69.2 kg

DRUGS (17)
  1. CELLUFRESH [Concomitant]
  2. ASPIRIN                            /00002701/ [Concomitant]
     Active Substance: ASPIRIN
  3. CLINDAMYCIN [Concomitant]
     Active Substance: CLINDAMYCIN\CLINDAMYCIN PHOSPHATE
  4. NEXIUM [Concomitant]
     Active Substance: ESOMEPRAZOLE MAGNESIUM
  5. SALOFALK                           /00000301/ [Concomitant]
     Active Substance: MESALAMINE
  6. MORPHINE [Concomitant]
     Active Substance: MORPHINE
  7. PREDNISONE. [Concomitant]
     Active Substance: PREDNISONE
  8. TEMAZE [Concomitant]
     Active Substance: TEMAZEPAM
  9. PROLIA [Suspect]
     Active Substance: DENOSUMAB
     Indication: PRODUCT USED FOR UNKNOWN INDICATION
     Dosage: 60 MG, UNK
     Route: 065
     Dates: start: 20131108, end: 20140331
  10. BETNOVATE [Concomitant]
     Active Substance: BETAMETHASONE
  11. EVISTA [Concomitant]
     Active Substance: RALOXIFENE HYDROCHLORIDE
  12. MICROLAX                           /00285401/ [Concomitant]
  13. PREDSOL                            /00016201/ [Concomitant]
     Active Substance: PREDNISOLONE
  14. HYDROCORTISONE. [Concomitant]
     Active Substance: HYDROCORTISONE
  15. STEMETIL                           /00013301/ [Concomitant]
  16. FISHAPHOS [Concomitant]
  17. LIPITOR [Concomitant]
     Active Substance: ATORVASTATIN CALCIUM

REACTIONS (2)
  - Deafness [Recovered/Resolved]
  - Joint stiffness [Recovered/Resolved]
